FAERS Safety Report 4874110-9 (Version None)
Quarter: 2006Q1

REPORT INFORMATION
  Report Type: 
  Country: None (occurrence: None)
  Receive Date: 20060104
  Receipt Date: 20051220
  Transmission Date: 20060701
  Serious: Yes (Other)
  Sender: FDA-Public Use
  Company Number: 2005172349

PATIENT
  Age: 19 Year
  Sex: Female
  Weight: 68.0396 kg

DRUGS (2)
  1. DEPO-PROVERA [Suspect]
     Indication: CONTRACEPTION
     Dosage: 150 MG (150 MG, 1ST INJ. EVERY THREE MONTHS), INTRAMUSCULAR; 150 MG (150 MG,  EVERY 3 MONTHS; INTRAM
     Route: 030
     Dates: start: 20040131, end: 20040131
  2. DEPO-PROVERA [Suspect]
     Indication: CONTRACEPTION
     Dosage: 150 MG (150 MG, 1ST INJ. EVERY THREE MONTHS), INTRAMUSCULAR; 150 MG (150 MG,  EVERY 3 MONTHS; INTRAM
     Route: 030
     Dates: start: 20051208, end: 20051208

REACTIONS (3)
  - ABORTION SPONTANEOUS [None]
  - DRUG EXPOSURE DURING PREGNANCY [None]
  - PREGNANCY WITH INJECTABLE CONTRACEPTIVE [None]
